FAERS Safety Report 10211376 (Version 2)
Quarter: 2014Q2

REPORT INFORMATION
  Report Type: Spontaneous
  Country: CH (occurrence: CH)
  Receive Date: 20140602
  Receipt Date: 20140620
  Transmission Date: 20141212
  Serious: Yes (Death, Other)
  Sender: FDA-Public Use
  Company Number: PHHY2014CH065584

PATIENT
  Age: 78 Year
  Sex: Female

DRUGS (4)
  1. OCTREOTIDE, LONG ACTING [Suspect]
     Indication: NEUROENDOCRINE CARCINOMA METASTATIC
     Dosage: 30 MG, EVERY 28 DAYS
     Dates: start: 20100730
  2. AFINITOR [Suspect]
     Indication: NEUROENDOCRINE CARCINOMA METASTATIC
     Dosage: 10 MG, DAILY
  3. AFINITOR [Suspect]
     Dosage: 5 MG, DAILY
  4. DIURETICS [Concomitant]
     Dosage: UNK UKN, UNK

REACTIONS (8)
  - Malignant neoplasm progression [Fatal]
  - Decreased appetite [Fatal]
  - Ascites [Fatal]
  - Abdominal pain [Fatal]
  - Renal failure [Recovered/Resolved]
  - Oedema [Unknown]
  - Glomerular filtration rate decreased [Recovered/Resolved]
  - Intestinal obstruction [Unknown]
